FAERS Safety Report 8335547-9 (Version None)
Quarter: 2012Q2

REPORT INFORMATION
  Report Type: 
  Country: None (occurrence: None)
  Receive Date: 20120503
  Receipt Date: 20120201
  Transmission Date: 20120825
  Serious: Yes (Other)
  Sender: FDA-Public Use
  Company Number: CHPA2012US009650

PATIENT
  Sex: Female

DRUGS (2)
  1. EXCEDRIN TENSION HEADACHE CAPLETS [Suspect]
     Indication: HEADACHE
     Dosage: 2 DF, PRN
     Route: 048
  2. FIORICET [Concomitant]
     Indication: HEADACHE

REACTIONS (4)
  - DRUG DEPENDENCE [None]
  - FATIGUE [None]
  - ENERGY INCREASED [None]
  - OFF LABEL USE [None]
